FAERS Safety Report 13950448 (Version 1)
Quarter: 2017Q3

REPORT INFORMATION
  Report Type: Spontaneous
  Country: US (occurrence: US)
  Receive Date: 20170908
  Receipt Date: 20170908
  Transmission Date: 20171128
  Serious: Yes (Other)
  Sender: FDA-Public Use
  Company Number: US-ROCHE-1132444

PATIENT
  Sex: Female

DRUGS (21)
  1. CYTOXAN [Concomitant]
     Active Substance: CYCLOPHOSPHAMIDE
     Dosage: NORMAL SALINE 500CC
     Route: 065
     Dates: start: 20000406
  2. TYLENOL [Concomitant]
     Active Substance: ACETAMINOPHEN
     Route: 048
     Dates: start: 20000404
  3. ANZEMET [Concomitant]
     Active Substance: DOLASETRON MESYLATE
     Route: 065
     Dates: start: 20000427
  4. TYLENOL [Concomitant]
     Active Substance: ACETAMINOPHEN
     Route: 048
     Dates: start: 20000425
  5. DECADRON [Concomitant]
     Active Substance: DEXAMETHASONE
     Route: 065
     Dates: start: 20000427
  6. RITUXAN [Suspect]
     Active Substance: RITUXIMAB
     Dosage: NORMAL SALINE 1000
     Route: 065
     Dates: start: 20000516
  7. ANZEMET [Concomitant]
     Active Substance: DOLASETRON MESYLATE
     Route: 065
     Dates: start: 20000406
  8. CYTOXAN [Concomitant]
     Active Substance: CYCLOPHOSPHAMIDE
     Dosage: NORMAL SALINE 500CC
     Route: 065
     Dates: start: 20000518
  9. TYLENOL [Concomitant]
     Active Substance: ACETAMINOPHEN
     Route: 048
     Dates: start: 20000516
  10. VCR [Concomitant]
     Active Substance: VINCRISTINE
     Route: 040
     Dates: start: 20000406
  11. BENADRYL [Concomitant]
     Active Substance: DIPHENHYDRAMINE HYDROCHLORIDE
     Route: 042
     Dates: start: 20000425
  12. ANZEMET [Concomitant]
     Active Substance: DOLASETRON MESYLATE
     Route: 065
     Dates: start: 20000518
  13. CYTOXAN [Concomitant]
     Active Substance: CYCLOPHOSPHAMIDE
     Dosage: NORMAL SALINE 500CC
     Route: 065
     Dates: start: 20000427
  14. DECADRON [Concomitant]
     Active Substance: DEXAMETHASONE
     Route: 065
     Dates: start: 20000406
  15. BENADRYL [Concomitant]
     Active Substance: DIPHENHYDRAMINE HYDROCHLORIDE
     Route: 042
     Dates: start: 20000404
  16. VCR [Concomitant]
     Active Substance: VINCRISTINE
     Route: 040
     Dates: start: 20000427
  17. RITUXAN [Suspect]
     Active Substance: RITUXIMAB
     Indication: LYMPHOMA
     Dosage: NORMAL SALINE 500
     Route: 065
     Dates: start: 20000404
  18. DECADRON [Concomitant]
     Active Substance: DEXAMETHASONE
     Route: 065
     Dates: start: 20000518
  19. RITUXAN [Suspect]
     Active Substance: RITUXIMAB
     Dosage: NORMAL SALINE 1000
     Route: 065
     Dates: start: 20000425
  20. BENADRYL [Concomitant]
     Active Substance: DIPHENHYDRAMINE HYDROCHLORIDE
     Route: 042
     Dates: start: 20000516
  21. VCR [Concomitant]
     Active Substance: VINCRISTINE
     Route: 040
     Dates: start: 20000518

REACTIONS (5)
  - Cystitis [Unknown]
  - Dizziness [Unknown]
  - Chills [Unknown]
  - Nasopharyngitis [Unknown]
  - Pruritus [Unknown]
